FAERS Safety Report 5017488-8 (Version None)
Quarter: 2006Q2

REPORT INFORMATION
  Report Type: 
  Country: None (occurrence: None)
  Receive Date: 20060525
  Receipt Date: 20060503
  Transmission Date: 20061013
  Serious: Yes (Other)
  Sender: FDA-Public Use
  Company Number: US200605001017

PATIENT
  Age: 65 Year
  Sex: Female

DRUGS (16)
  1. HUMULIN N [Suspect]
     Indication: DIABETES MELLITUS
  2. DILTIAZEM [Concomitant]
  3. ATOMOXETINE (TOMOXETINE) [Concomitant]
  4. GLUCOPHAGE [Concomitant]
  5. ACTOS [Concomitant]
  6. LASIX [Concomitant]
  7. PLAVIX [Concomitant]
  8. ASPIRIN [Concomitant]
  9. NEXIUM  /UNK/ (ESOMEPRAZOLE) [Concomitant]
  10. LISINOPRIL [Concomitant]
  11. AMBIEN [Concomitant]
  12. LEVOTHYROXINE SODIUM [Concomitant]
  13. POTASSIUM [Concomitant]
  14. STOOL SOFTENER (DOCUSATE SODIUM) [Concomitant]
  15. MILK OF MAGNESIA TAB [Concomitant]
  16. METOPROLOL [Concomitant]

REACTIONS (4)
  - CORONARY ARTERY OCCLUSION [None]
  - GLAUCOMA [None]
  - PHARMACEUTICAL PRODUCT COMPLAINT [None]
  - VISUAL ACUITY REDUCED [None]
